FAERS Safety Report 5397287-8 (Version None)
Quarter: 2007Q3

REPORT INFORMATION
  Report Type: 
  Country: None (occurrence: None)
  Receive Date: 20070723
  Receipt Date: 20070712
  Transmission Date: 20080115
  Serious: Yes (Hospitalization)
  Sender: FDA-Public Use
  Company Number: 2007-03299

PATIENT
  Age: 61 Year
  Sex: Male

DRUGS (3)
  1. COLCHICUM JTL LIQ [Suspect]
     Indication: GOUT
     Dosage: 0.5 MG, BID
  2. CLARITHROMYCIN EXTENDED RELEASE [Suspect]
     Indication: PNEUMONIA
     Dosage: 500 MG, BID
  3. CLARITHROMYCIN EXTENDED RELEASE [Suspect]
     Indication: UPPER RESPIRATORY TRACT INFECTION
     Dosage: 500 MG, BID

REACTIONS (2)
  - DRUG INTERACTION POTENTIATION [None]
  - DRUG TOXICITY [None]
